FAERS Safety Report 12904570 (Version 4)
Quarter: 2017Q1

REPORT INFORMATION
  Report Type: Report from Study
  Country: JP (occurrence: JP)
  Receive Date: 20161102
  Receipt Date: 20170201
  Transmission Date: 20170428
  Serious: Yes (Hospitalization, Other)
  Sender: FDA-Public Use
  Company Number: JP-PFIZER INC-2016492981

PATIENT
  Age: 72 Year
  Sex: Male
  Weight: 57 kg

DRUGS (5)
  1. CISPLATIN. [Suspect]
     Active Substance: CISPLATIN
     Indication: OROPHARYNGEAL CANCER
     Dosage: 97.8 MG, ON DAY 8 (2 CYCLES EVERY 4 WEEKS)
     Route: 042
     Dates: start: 20141203, end: 20141203
  2. DOCETAXEL 120MG/12ML HOSPIRA [Suspect]
     Active Substance: DOCETAXEL
     Indication: OROPHARYNGEAL CANCER
     Dosage: 81.5 MG, ON DAY 8 (2 CYCLES EVERY 4 WEEKS)
     Route: 042
     Dates: start: 20141203, end: 20141203
  3. ERBITUX [Suspect]
     Active Substance: CETUXIMAB
     Indication: OROPHARYNGEAL CANCER
     Dosage: 652 MG, 1ST WEEK (2 CYCLES EVERY 4 WEEKS)
     Route: 042
     Dates: start: 20141126, end: 20141126
  4. ERBITUX [Suspect]
     Active Substance: CETUXIMAB
     Dosage: 407.5 MG, SUBSEQUENT WEEKS  (2 CYCLES EVERY 4 WEEKS)
     Route: 042
     Dates: start: 20141203, end: 20141203
  5. ERBITUX [Suspect]
     Active Substance: CETUXIMAB
     Dosage: 407.5 MG, SUBSEQUENT WEEKS (2 CYCLES EVERY 4 WEEKS)
     Route: 042
     Dates: start: 20141217, end: 20141217

REACTIONS (5)
  - Infective myositis [Recovering/Resolving]
  - Febrile neutropenia [Recovered/Resolved]
  - Stomatitis [Recovered/Resolved]
  - Pancytopenia [Recovered/Resolved]
  - Spondylitis [Recovering/Resolving]

NARRATIVE: CASE EVENT DATE: 20141208
